FAERS Safety Report 15317421 (Version 1)
Quarter: 2018Q3

REPORT INFORMATION
  Report Type: Spontaneous
  Country: US (occurrence: US)
  Receive Date: 20180824
  Receipt Date: 20180824
  Transmission Date: 20181010
  Serious: Yes (Other)
  Sender: FDA-Public Use
  Company Number: US-AMAG PHARMACEUTICALS, INC.-AMAG201804649

PATIENT
  Age: 34 Year
  Sex: Female
  Weight: 65.76 kg

DRUGS (1)
  1. MAKENA [Suspect]
     Active Substance: HYDROXYPROGESTERONE CAPROATE
     Indication: PREMATURE DELIVERY
     Dosage: 250 MG/ML, WEEKLY
     Route: 030
     Dates: start: 20180713, end: 20180803

REACTIONS (1)
  - Preterm premature rupture of membranes [Recovered/Resolved]

NARRATIVE: CASE EVENT DATE: 20180806
